FAERS Safety Report 9495048 (Version 1)
Quarter: 2013Q3

REPORT INFORMATION
  Report Type: Spontaneous
  Country: US (occurrence: None)
  Receive Date: 20130830
  Receipt Date: 20130830
  Transmission Date: 20140515
  Serious: No
  Sender: FDA-Public Use
  Company Number: None

PATIENT
  Age: 55 Year
  Sex: Female

DRUGS (6)
  1. ARIMIDEX [Suspect]
     Indication: BREAST CANCER
     Route: 048
     Dates: start: 20130720
  2. ASA [Concomitant]
  3. CALCIUM [Concomitant]
  4. LEVORGL [Concomitant]
  5. MULTIVITAMINS [Concomitant]
  6. VITAMIN C [Concomitant]

REACTIONS (1)
  - Urinary tract infection [None]
